FAERS Safety Report 5444973-7 (Version None)
Quarter: 2007Q3

REPORT INFORMATION
  Report Type: 
  Country: None (occurrence: None)
  Receive Date: 20070904
  Receipt Date: 20070904
  Transmission Date: 20080115
  Serious: Yes (Life-Threatening)
  Sender: FDA-Public Use
  Company Number: None

PATIENT
  Age: 63 Year
  Sex: Female
  Weight: 86.1834 kg

DRUGS (1)
  1. SULFAZINE EC 500 MG [Suspect]
     Indication: RHEUMATOID ARTHRITIS
     Dosage: TWO TABLETS BY MOUTH EVERY 12 HOURS PO
     Route: 048
     Dates: start: 20070712, end: 20070809

REACTIONS (2)
  - HYPERSENSITIVITY [None]
  - STEVENS-JOHNSON SYNDROME [None]
